FAERS Safety Report 9110466 (Version 1)
Quarter: 2013Q1

REPORT INFORMATION
  Report Type: Spontaneous
  Country: US (occurrence: US)
  Receive Date: 20130219
  Receipt Date: 20130219
  Transmission Date: 20140127
  Serious: Yes (Life-Threatening)
  Sender: FDA-Public Use
  Company Number: US-BRACCO-008891

PATIENT
  Age: 72 Year
  Sex: Female

DRUGS (3)
  1. ISOVUE 300 [Suspect]
     Indication: COMPUTERISED TOMOGRAM
     Route: 042
     Dates: start: 20121127, end: 20121127
  2. ISOVUE 300 [Suspect]
     Indication: LYMPHADENOPATHY
     Route: 042
     Dates: start: 20121127, end: 20121127
  3. ISOVUE 300 [Suspect]
     Indication: FATIGUE
     Route: 042
     Dates: start: 20121127, end: 20121127

REACTIONS (1)
  - Anaphylactic reaction [Recovered/Resolved]
